FAERS Safety Report 7918568-7 (Version None)
Quarter: 2011Q4

REPORT INFORMATION
  Report Type: 
  Country: None (occurrence: None)
  Receive Date: 20111114
  Receipt Date: 20111103
  Transmission Date: 20120403
  Serious: Yes (Other)
  Sender: FDA-Public Use
  Company Number: 1100963

PATIENT
  Age: 15 Year
  Sex: Female

DRUGS (3)
  1. ETOPOSIDE [Suspect]
     Indication: NEUROBLASTOMA
  2. (THERAPEUTIC RADIOPHARMACEUTICALS) [Suspect]
     Indication: NEUROBLASTOMA
     Dosage: 1.0 GY X 2/D
  3. CARBOPLATIN [Suspect]
     Indication: NEUROBLASTOMA

REACTIONS (3)
  - GASTROOESOPHAGEAL REFLUX DISEASE [None]
  - OESOPHAGITIS [None]
  - BARRETT'S OESOPHAGUS [None]
